FAERS Safety Report 8843039 (Version 1)
Quarter: 2012Q4

REPORT INFORMATION
  Report Type: 
  Country: GB (occurrence: GB)
  Receive Date: 20121016
  Receipt Date: 20121016
  Transmission Date: 20130627
  Serious: Yes (Death)
  Sender: FDA-Public Use
  Company Number: GB-GLAXOSMITHKLINE-B0670191A

PATIENT

DRUGS (2)
  1. PAROXETINE [Suspect]
  2. CLOZAPINE [Suspect]
     Route: 048
     Dates: start: 20050805, end: 20100318

REACTIONS (3)
  - Circulatory collapse [Fatal]
  - Coronary artery disease [Fatal]
  - Drug level increased [Fatal]
